FAERS Safety Report 17388842 (Version 1)
Quarter: 2020Q1

REPORT INFORMATION
  Report Type: Spontaneous
  Country: HU (occurrence: HU)
  Receive Date: 20200207
  Receipt Date: 20200207
  Transmission Date: 20200409
  Serious: Yes (Death)
  Sender: FDA-Public Use
  Company Number: HU-ELI_LILLY_AND_COMPANY-HU202002001132

PATIENT
  Sex: Female

DRUGS (5)
  1. LISPRO [Suspect]
     Active Substance: INSULIN LISPRO
     Indication: TYPE 1 DIABETES MELLITUS
     Dosage: 1-2 UNITS, OTHER (2-3 TIMES PER WEEK)
     Route: 065
     Dates: start: 2004
  2. INSULIN DEGLUDEC [Concomitant]
     Active Substance: INSULIN DEGLUDEC
     Indication: TYPE 1 DIABETES MELLITUS
     Dosage: UNK, UNKNOWN
     Route: 065
  3. INSULIN GLULISINE [Concomitant]
     Active Substance: INSULIN GLULISINE
     Indication: TYPE 1 DIABETES MELLITUS
     Dosage: UNK, UNKNOWN
     Route: 065
  4. INSULIN HUMAN [Suspect]
     Active Substance: INSULIN HUMAN
     Indication: TYPE 1 DIABETES MELLITUS
     Dosage: 22 U, DAILY
     Route: 065
     Dates: start: 2004
  5. INSULIN HUMAN [Suspect]
     Active Substance: INSULIN HUMAN
     Indication: TYPE 1 DIABETES MELLITUS
     Dosage: 22 U, DAILY
     Route: 065

REACTIONS (7)
  - Hypoglycaemia [Unknown]
  - Blood glucose fluctuation [Unknown]
  - Myocardial infarction [Fatal]
  - Dry age-related macular degeneration [Unknown]
  - Visual impairment [Unknown]
  - Overdose [Unknown]
  - Neuropathy peripheral [Unknown]
